FAERS Safety Report 15043680 (Version 3)
Quarter: 2018Q3

REPORT INFORMATION
  Report Type: Spontaneous
  Country: CA (occurrence: CA)
  Receive Date: 20180621
  Receipt Date: 20180822
  Transmission Date: 20181010
  Serious: Yes (Other)
  Sender: FDA-Public Use
  Company Number: CA-CELLTRION INC.-2018CA019880

PATIENT

DRUGS (7)
  1. INFLECTRA [Suspect]
     Active Substance: INFLIXIMAB-DYYB
     Indication: COLITIS ULCERATIVE
     Dosage: 310 MG, CYCLIC (EVERY 2, 6 , WEEKS, THEN EVERY 8  WEEKS)
     Route: 042
     Dates: start: 20180314
  2. ASACOL HD [Concomitant]
     Active Substance: MESALAMINE
     Dosage: UNK
  3. INFLECTRA [Suspect]
     Active Substance: INFLIXIMAB-DYYB
     Dosage: 310 MG, CYCLIC (EVERY 2, 6 , WEEKS, THEN EVERY 8  WEEKS)
     Route: 042
     Dates: start: 20180423
  4. INFLECTRA [Suspect]
     Active Substance: INFLIXIMAB-DYYB
     Dosage: 310 MG, CYCLIC (EVERY 2, 6 , WEEKS, THEN EVERY 8  WEEKS)
     Route: 042
     Dates: start: 20180813
  5. PREDNISONE                         /00044702/ [Concomitant]
     Active Substance: PREDNISONE
     Dosage: UNK
     Dates: start: 2015, end: 20180418
  6. INFLECTRA [Suspect]
     Active Substance: INFLIXIMAB-DYYB
     Dosage: 310 MG, CYCLIC (EVERY 2, 6 , WEEKS, THEN EVERY 8  WEEKS)
     Route: 042
     Dates: start: 20180328
  7. INFLECTRA [Suspect]
     Active Substance: INFLIXIMAB-DYYB
     Dosage: 310 MG, CYCLIC (EVERY 2, 6 , WEEKS, THEN EVERY 8  WEEKS)
     Route: 042
     Dates: start: 20180618

REACTIONS (7)
  - Constipation [Not Recovered/Not Resolved]
  - Condition aggravated [Not Recovered/Not Resolved]
  - Haemorrhoids [Unknown]
  - Rectal haemorrhage [Not Recovered/Not Resolved]
  - Seasonal allergy [Not Recovered/Not Resolved]
  - Arthralgia [Unknown]
  - Condition aggravated [Unknown]
